FAERS Safety Report 13830018 (Version 2)
Quarter: 2020Q2

REPORT INFORMATION
  Report Type: Report from Study
  Country: US (occurrence: US)
  Receive Date: 20170803
  Receipt Date: 20200416
  Transmission Date: 20200713
  Serious: Yes (Other)
  Sender: FDA-Public Use
  Company Number: US-EISAI MEDICAL RESEARCH-EC-2015-007062

PATIENT
  Age: 54 Year
  Sex: Male
  Weight: 117.9 kg

DRUGS (8)
  1. LENVIMA [Suspect]
     Active Substance: LENVATINIB
     Route: 048
  2. LEVOTHYROXINE. [Concomitant]
     Active Substance: LEVOTHYROXINE
  3. LENVIMA [Suspect]
     Active Substance: LENVATINIB
     Route: 048
     Dates: start: 2015
  4. LENVIMA [Suspect]
     Active Substance: LENVATINIB
     Indication: THYROID CANCER
     Route: 048
     Dates: start: 20150428, end: 2015
  5. SYNTHROID [Concomitant]
     Active Substance: LEVOTHYROXINE SODIUM
  6. ZOLPIDEM TARTRATE. [Concomitant]
     Active Substance: ZOLPIDEM TARTRATE
  7. ASPIRIN. [Concomitant]
     Active Substance: ASPIRIN
  8. TERBINAFINE. [Concomitant]
     Active Substance: TERBINAFINE

REACTIONS (15)
  - Fatigue [Unknown]
  - Blood pressure increased [Unknown]
  - Myocardial infarction [Unknown]
  - Arthralgia [Not Recovered/Not Resolved]
  - Stomatitis [Unknown]
  - Eye disorder [Unknown]
  - Nasopharyngitis [Unknown]
  - Rash [Unknown]
  - Cough [Unknown]
  - Oropharyngeal pain [Unknown]
  - Nausea [Unknown]
  - Decreased appetite [Unknown]
  - Diarrhoea [Unknown]
  - Oral pain [Unknown]
  - Glossodynia [Unknown]

NARRATIVE: CASE EVENT DATE: 201505
